FAERS Safety Report 6073294-7 (Version None)
Quarter: 2009Q1

REPORT INFORMATION
  Report Type: 
  Country: None (occurrence: None)
  Receive Date: 20090206
  Receipt Date: 20090126
  Transmission Date: 20090719
  Serious: Yes (Other)
  Sender: FDA-Public Use
  Company Number: 2009S1001571

PATIENT
  Age: 69 Year
  Sex: Male

DRUGS (3)
  1. METHOTREXATE [Suspect]
     Indication: RHEUMATOID ARTHRITIS
     Dosage: 5 MG; TWICE A DAY; SUBCUTANEOUS; 7.5 MG; TWICE A DAY; SUBCUTANEOUS
     Route: 058
     Dates: start: 20090101
  2. METHOTREXATE [Suspect]
     Indication: RHEUMATOID ARTHRITIS
     Dosage: 5 MG; TWICE A DAY; SUBCUTANEOUS; 7.5 MG; TWICE A DAY; SUBCUTANEOUS
     Route: 058
     Dates: start: 20090101
  3. METHOTREXATE [Suspect]
     Indication: RHEUMATOID ARTHRITIS
     Dosage: 7.5MG TWICE A DAY
     Route: 058

REACTIONS (8)
  - AGITATION [None]
  - CHEST PAIN [None]
  - CHILLS [None]
  - COLD SWEAT [None]
  - LOSS OF CONSCIOUSNESS [None]
  - PRODUCT QUALITY ISSUE [None]
  - TACHYCARDIA [None]
  - TACHYPNOEA [None]
